FAERS Safety Report 5813188-2 (Version None)
Quarter: 2008Q3

REPORT INFORMATION
  Report Type: 
  Country: None (occurrence: None)
  Receive Date: 20080717
  Receipt Date: 20080404
  Transmission Date: 20090109
  Serious: No
  Sender: FDA-Public Use
  Company Number: A0719252A

PATIENT
  Age: 61 Year
  Sex: Female

DRUGS (2)
  1. NICORETTE [Suspect]
  2. NICORETTE [Suspect]

REACTIONS (5)
  - GLOSSITIS [None]
  - GLOSSODYNIA [None]
  - HICCUPS [None]
  - NAUSEA [None]
  - NICOTINE DEPENDENCE [None]
